FAERS Safety Report 21019969 (Version 1)
Quarter: 2022Q3

REPORT INFORMATION
  Report Type: Spontaneous
  Country: KR (occurrence: KR)
  Receive Date: 20220628
  Receipt Date: 20220628
  Transmission Date: 20221027
  Serious: Yes (Other)
  Sender: FDA-Public Use
  Company Number: KR-NOVARTISPH-NVSC2022KR145188

PATIENT

DRUGS (1)
  1. PAZOPANIB [Suspect]
     Active Substance: PAZOPANIB
     Indication: Metastatic renal cell carcinoma
     Dosage: UNK
     Route: 065

REACTIONS (1)
  - Stomatitis [Unknown]
